FAERS Safety Report 9044288 (Version 3)
Quarter: 2013Q1

REPORT INFORMATION
  Report Type: Spontaneous
  Country: US (occurrence: US)
  Receive Date: 20130131
  Receipt Date: 20130227
  Transmission Date: 20140127
  Serious: Yes (Hospitalization)
  Sender: FDA-Public Use
  Company Number: US-BIOGENIDEC-2013BI009045

PATIENT
  Age: 64 Year
  Sex: Female

DRUGS (1)
  1. TYSABRI [Suspect]
     Indication: MULTIPLE SCLEROSIS
     Route: 042
     Dates: start: 200702

REACTIONS (8)
  - Fall [Recovered/Resolved]
  - Upper limb fracture [Recovered/Resolved]
  - Foot fracture [Recovered/Resolved]
  - Excoriation [Recovered/Resolved]
  - Excessive skin [Recovered/Resolved]
  - Anaemia [Not Recovered/Not Resolved]
  - Urinary tract infection [Recovered/Resolved]
  - Neuropathy peripheral [Not Recovered/Not Resolved]
